FAERS Safety Report 5225359-7 (Version None)
Quarter: 2007Q1

REPORT INFORMATION
  Report Type: 
  Country: None (occurrence: None)
  Receive Date: 20070131
  Receipt Date: 20070129
  Transmission Date: 20070707
  Serious: Yes (Other)
  Sender: FDA-Public Use
  Company Number: ES-ROXANE LABORATORIES, INC-2007-BP-01382RO

PATIENT
  Age: 37 Year
  Sex: Male

DRUGS (5)
  1. METHOTREXATE [Suspect]
     Indication: ANKYLOSING SPONDYLITIS
     Dosage: 7.5 - 10 MG/WEEK
  2. PREDNISONE [Suspect]
     Indication: ANKYLOSING SPONDYLITIS
     Dosage: 10 - 20 MG/DAY
  3. INFLIXIMAB [Suspect]
     Indication: ANKYLOSING SPONDYLITIS
     Dosage: 3 MG/KG X 21 DOSES (OVER 3 YEARS)
  4. INFLIXIMAB [Suspect]
     Dosage: 5 MG/KG X 9 DOSES (OVER 3 YEARS)
  5. NONSTERIODAL ANTI-INFLAMMATORY [Suspect]
     Indication: ANKYLOSING SPONDYLITIS

REACTIONS (5)
  - ANAEMIA [None]
  - GASTROINTESTINAL HAEMORRHAGE [None]
  - KAPOSI'S SARCOMA [None]
  - PANCREATIC NEOPLASM [None]
  - SKIN NODULE [None]
